FAERS Safety Report 8560473-X (Version None)
Quarter: 2012Q3

REPORT INFORMATION
  Report Type: 
  Country: None (occurrence: None)
  Receive Date: 20120802
  Receipt Date: 20120723
  Transmission Date: 20120928
  Serious: Yes (Hospitalization)
  Sender: FDA-Public Use
  Company Number: FR-ROCHE-1091917

PATIENT
  Age: 65 Year
  Sex: Female

DRUGS (10)
  1. ANAFRANIL [Suspect]
     Dates: start: 20120705
  2. ZYPREXA [Suspect]
     Indication: MAJOR DEPRESSION
     Route: 048
     Dates: start: 20120628, end: 20120716
  3. MIDODRINE HYDROCHLORIDE [Suspect]
     Dates: end: 20120716
  4. MIDODRINE HYDROCHLORIDE [Suspect]
     Indication: ORTHOSTATIC HYPOTENSION
     Route: 048
     Dates: start: 20120622
  5. AVASTIN [Suspect]
     Indication: BREAST CANCER
     Route: 042
     Dates: end: 20120716
  6. ANAFRANIL [Suspect]
     Indication: MAJOR DEPRESSION
     Dosage: 25 MG/ 2 ML
     Route: 030
     Dates: start: 20120620
  7. ANAFRANIL [Suspect]
     Route: 048
     Dates: start: 20120622
  8. ZOFRAN [Suspect]
     Indication: VOMITING
     Route: 048
     Dates: end: 20120716
  9. CHLORPROMAZINE HCL [Suspect]
     Indication: MAJOR DEPRESSION
     Route: 030
     Dates: start: 20120620, end: 20120628
  10. TAXOL [Suspect]
     Indication: BREAST CANCER RECURRENT
     Route: 042
     Dates: end: 20120716

REACTIONS (1)
  - CYTOLYTIC HEPATITIS [None]
